FAERS Safety Report 7933614-2 (Version None)
Quarter: 2011Q4

REPORT INFORMATION
  Report Type: 
  Country: None (occurrence: None)
  Receive Date: 20111118
  Receipt Date: 20111108
  Transmission Date: 20120403
  Serious: Yes (Death)
  Sender: FDA-Public Use
  Company Number: ADR-2011-11529

PATIENT
  Age: 69 Year
  Sex: Male

DRUGS (3)
  1. BACLOFEN [Suspect]
     Indication: MULTIPLE MYELOMA
  2. BUPIVACAINE INTRATHECAL [Concomitant]
  3. DILAUDID 3MG/ML [Concomitant]

REACTIONS (1)
  - CONDITION AGGRAVATED [None]
